FAERS Safety Report 10072501 (Version 1)
Quarter: 2014Q2

REPORT INFORMATION
  Report Type: Spontaneous
  Country: US (occurrence: US)
  Receive Date: 20140411
  Receipt Date: 20140411
  Transmission Date: 20141212
  Serious: No
  Sender: FDA-Public Use
  Company Number: US-SHIRE-US201401217

PATIENT
  Sex: Female

DRUGS (2)
  1. LIALDA [Suspect]
     Indication: PRODUCT USED FOR UNKNOWN INDICATION
     Dosage: 4.8 G ( 1.2 G, FOUR TABLETS), 1X/DAY:QD
     Route: 048
     Dates: start: 201404
  2. LIALDA [Suspect]
     Dosage: 1.2 G, 2X/DAY:BID
     Route: 048
     Dates: end: 201404

REACTIONS (2)
  - Medication residue present [Not Recovered/Not Resolved]
  - Inappropriate schedule of drug administration [Recovered/Resolved]
